FAERS Safety Report 9112526 (Version 1)
Quarter: 2013Q1

REPORT INFORMATION
  Report Type: Spontaneous
  Country: US (occurrence: US)
  Receive Date: 20130211
  Receipt Date: 20130211
  Transmission Date: 20140127
  Serious: Yes (Other)
  Sender: FDA-Public Use
  Company Number: US-RB-049164-13

PATIENT
  Age: 31 Year
  Sex: Female

DRUGS (2)
  1. CEPACOL [Suspect]
     Indication: PRODUCT USED FOR UNKNOWN INDICATION
     Dosage: 1 LOZENGE
     Route: 048
     Dates: start: 20130117
  2. CEPACOL [Suspect]

REACTIONS (3)
  - Oedema mouth [Not Recovered/Not Resolved]
  - Oral pruritus [Not Recovered/Not Resolved]
  - Oral discomfort [Not Recovered/Not Resolved]
